FAERS Safety Report 9496728 (Version 1)
Quarter: 2013Q3

REPORT INFORMATION
  Report Type: Spontaneous
  Country: US (occurrence: None)
  Receive Date: 20130903
  Receipt Date: 20130903
  Transmission Date: 20140515
  Serious: Yes (Other)
  Sender: FDA-Public Use
  Company Number: None

PATIENT
  Age: 49 Year
  Sex: Female
  Weight: 42.18 kg

DRUGS (7)
  1. GADAVIST [Suspect]
     Indication: NUCLEAR MAGNETIC RESONANCE IMAGING
     Dosage: 5 CC INJECTION DURING MRI PROCEDURE, INJECTION (PRECEDED BY SALINE INJECTION? OR 2 ATTEMPTS)
  2. GADAVIST [Suspect]
     Dosage: 5 CC INJECTION DURING MRI PROCEDURE, INJECTION (PRECEDED BY SALINE INJECTION? OR 2 ATTEMPTS)
  3. DIAZEPAM [Concomitant]
  4. ASPIRIN [Concomitant]
  5. VIIBRYD [Concomitant]
  6. ASPIRIN [Concomitant]
  7. CENTRUM SILVER [Concomitant]

REACTIONS (15)
  - Renal failure acute [None]
  - Rash [None]
  - Headache [None]
  - Nausea [None]
  - Erythema [None]
  - Pruritus [None]
  - Pain of skin [None]
  - Blister [None]
  - Peau d^orange [None]
  - Skin ulcer [None]
  - Skin haemorrhage [None]
  - Rash pustular [None]
  - Fatigue [None]
  - Malaise [None]
  - Arthralgia [None]
